FAERS Safety Report 15283784 (Version 1)
Quarter: 2018Q4

REPORT INFORMATION
  Report Type: Spontaneous
  Country: NL (occurrence: NL)
  Receive Date: 20180816
  Receipt Date: 20180816
  Transmission Date: 20190204
  Serious: Yes (Other)
  Sender: FDA-Public Use
  Company Number: NL-TEVA-2018-NL-942369

PATIENT
  Age: 65 Year
  Sex: Female
  Weight: 64 kg

DRUGS (5)
  1. SIMVASTATINE [Concomitant]
     Active Substance: SIMVASTATIN
     Route: 065
  2. DIAREMMER; KRUIDVAT EIGEN MERK DIAREMMER LOPERAMIDE HCL 2 MG [Suspect]
     Active Substance: LOPERAMIDE HYDROCHLORIDE
     Indication: PROPHYLAXIS
     Dosage: 1 PER DAG // EEN INGENOMEN
     Dates: start: 20180612
  3. ZOLPIDEM [Concomitant]
     Active Substance: ZOLPIDEM\ZOLPIDEM TARTRATE
     Dosage: HALVE DOSERING
  4. OMEPRAZOL [Concomitant]
     Active Substance: OMEPRAZOLE
     Route: 065
  5. MIRTAZAPINE. [Concomitant]
     Active Substance: MIRTAZAPINE
     Route: 065

REACTIONS (5)
  - Loss of consciousness [Recovered/Resolved]
  - Dizziness [Recovered/Resolved]
  - Muscular weakness [Recovered/Resolved]
  - Sudden onset of sleep [Recovered/Resolved]
  - Inappropriate affect [Recovered/Resolved]

NARRATIVE: CASE EVENT DATE: 20180612
